FAERS Safety Report 10779740 (Version 1)
Quarter: 2015Q1

REPORT INFORMATION
  Report Type: Spontaneous
  Country: US (occurrence: None)
  Receive Date: 20150206
  Receipt Date: 20150206
  Transmission Date: 20150721
  Serious: Yes (Hospitalization)
  Sender: FDA-Public Use
  Company Number: None

PATIENT
  Age: 51 Year
  Sex: Female
  Weight: 86.7 kg

DRUGS (8)
  1. ETOPOSIDE (VP-16) [Suspect]
     Active Substance: ETOPOSIDE
     Dates: end: 20150129
  2. PREDNISONE. [Concomitant]
     Active Substance: PREDNISONE
  3. OXYCODONE [Concomitant]
     Active Substance: OXYCODONE
  4. CISPLATIN. [Suspect]
     Active Substance: CISPLATIN
     Dates: end: 20150128
  5. PROCHLORPERAZINE MALEATE. [Concomitant]
     Active Substance: PROCHLORPERAZINE MALEATE
  6. ONDANSETRON [Concomitant]
     Active Substance: ONDANSETRON
  7. FLUOXETINE [Concomitant]
     Active Substance: FLUOXETINE\FLUOXETINE HYDROCHLORIDE
  8. TYLENOL PM [Concomitant]
     Active Substance: ACETAMINOPHEN\DIPHENHYDRAMINE

REACTIONS (5)
  - Loss of consciousness [None]
  - Cardiac arrest [None]
  - Pulmonary hypertension [None]
  - Nausea [None]
  - Vomiting [None]

NARRATIVE: CASE EVENT DATE: 20150129
